FAERS Safety Report 9025478 (Version 1)
Quarter: 2013Q1

REPORT INFORMATION
  Report Type: Spontaneous
  Country: NZ (occurrence: NZ)
  Receive Date: 20130122
  Receipt Date: 20130122
  Transmission Date: 20140127
  Serious: Yes (Other)
  Sender: FDA-Public Use
  Company Number: NZ-PFIZER INC-2012286947

PATIENT
  Age: 74 Year
  Sex: Female

DRUGS (4)
  1. ZARATOR [Suspect]
     Indication: BLOOD CHOLESTEROL
     Dosage: 40 MG, 1X/DAY
     Route: 048
     Dates: start: 20120817
  2. MAREVAN [Concomitant]
     Indication: ANTICOAGULANT THERAPY
     Dosage: UNK
     Route: 048
     Dates: start: 20060424
  3. INHIBACE PLUS [Concomitant]
     Indication: BLOOD PRESSURE
     Dosage: UNK, 1X/DAY
     Route: 048
     Dates: start: 20111123
  4. TRIMETHOPRIM [Concomitant]
     Dosage: 300 MG, 1X/DAY

REACTIONS (1)
  - International normalised ratio fluctuation [Unknown]
